FAERS Safety Report 8707364 (Version 2)
Quarter: 2012Q4

REPORT INFORMATION
  Report Type: 
  Country: US (occurrence: US)
  Receive Date: 20120803
  Receipt Date: 20121126
  Transmission Date: 20130627
  Serious: Yes (Other)
  Sender: FDA-Public Use
  Company Number: US-ASTRAZENECA-2012SE53381

PATIENT
  Age: 63 Year
  Sex: Female

DRUGS (1)
  1. TOPROL XL [Suspect]
     Route: 048

REACTIONS (4)
  - Lung neoplasm malignant [Unknown]
  - Gait disturbance [Unknown]
  - Sepsis [Unknown]
  - Full blood count decreased [Unknown]
